FAERS Safety Report 9487278 (Version 3)
Quarter: 2014Q1

REPORT INFORMATION
  Report Type: Report from Study
  Country: US (occurrence: US)
  Receive Date: 20130829
  Receipt Date: 20140117
  Transmission Date: 20141002
  Serious: Yes (Other)
  Sender: FDA-Public Use
  Company Number: US-ROCHE-1267309

PATIENT
  Age: 53 Year
  Sex: Female
  Weight: 97.16 kg

DRUGS (12)
  1. ACTEMRA [Suspect]
     Indication: PRODUCT USED FOR UNKNOWN INDICATION
     Dosage: MOST RECENT DOSE:  789.1 MG ON 06/AUG/2013
     Route: 042
  2. ATIVAN [Concomitant]
     Dosage: TAKES 2 TABS
     Route: 065
  3. DOCUSATE SODIUM [Concomitant]
     Route: 065
  4. FISH OIL [Concomitant]
     Route: 065
  5. LASIX [Concomitant]
     Route: 048
  6. HYDROCODONE/ACETAMINOPHEN [Concomitant]
     Dosage: 10/325 MG, AS NEEDED
     Route: 065
  7. KENALOG (UNITED STATES) [Concomitant]
     Dosage: 10MG PER ML SUSPENSION
     Route: 030
  8. NYSTATIN [Concomitant]
     Dosage: 1000U/ML SWISH AND SWALLOW 5 ML FOUR TIMES A DAY
     Route: 065
  9. TRAZODONE [Concomitant]
     Dosage: AT NIGHT TIME
     Route: 048
  10. XYZAL [Concomitant]
     Route: 048
  11. FOLIC ACID [Concomitant]
     Route: 065
  12. METHOTREXATE [Concomitant]
     Route: 065

REACTIONS (8)
  - Fall [Unknown]
  - Back pain [Not Recovered/Not Resolved]
  - Arthralgia [Not Recovered/Not Resolved]
  - Musculoskeletal chest pain [Not Recovered/Not Resolved]
  - Painful respiration [Unknown]
  - Headache [Not Recovered/Not Resolved]
  - Tongue ulceration [Recovered/Resolved]
  - Renal cyst [Not Recovered/Not Resolved]
